FAERS Safety Report 12411548 (Version 2)
Quarter: 2016Q2

REPORT INFORMATION
  Report Type: Spontaneous
  Country: FR (occurrence: FR)
  Receive Date: 20160527
  Receipt Date: 20160609
  Transmission Date: 20160815
  Serious: Yes (Life-Threatening, Other)
  Sender: FDA-Public Use
  Company Number: FR-GLAXOSMITHKLINE-FR2016GSK075636

PATIENT
  Age: 50 Year
  Sex: Female
  Weight: 62 kg

DRUGS (18)
  1. IPRATROPIUM [Concomitant]
     Active Substance: IPRATROPIUM
     Indication: PRODUCT USED FOR UNKNOWN INDICATION
     Dosage: UNK
     Route: 055
  2. VENTOLINE [Concomitant]
     Active Substance: ALBUTEROL
     Indication: PRODUCT USED FOR UNKNOWN INDICATION
     Dosage: UNK UNK, PRN
  3. ZITHROMAX [Concomitant]
     Active Substance: AZITHROMYCIN DIHYDRATE
     Indication: PRODUCT USED FOR UNKNOWN INDICATION
     Dosage: 250 MG, Z
  4. LOVENOX [Concomitant]
     Active Substance: ENOXAPARIN SODIUM
     Indication: PRODUCT USED FOR UNKNOWN INDICATION
     Dosage: UNK
     Dates: start: 20160226
  5. FUNGIZONE [Concomitant]
     Active Substance: AMPHOTERICIN B
     Indication: PRODUCT USED FOR UNKNOWN INDICATION
     Dosage: UNK
     Dates: start: 20160226
  6. SALBUMOL [Suspect]
     Active Substance: ALBUTEROL SULFATE
     Indication: ASTHMA
     Dosage: UNK, 0.2 MG/HOUR (IV).
     Route: 042
     Dates: start: 20160302, end: 20160314
  7. SALBUMOL [Suspect]
     Active Substance: ALBUTEROL SULFATE
     Dosage: UNK UNK, Z (0.4 MG PER HOUR)
     Dates: start: 20160303
  8. SALBUMOL [Suspect]
     Active Substance: ALBUTEROL SULFATE
     Dosage: UNK UNK, Z (1 MG PER HOUR)
     Route: 042
     Dates: start: 20160313, end: 20160314
  9. SERETIDE [Concomitant]
     Active Substance: FLUTICASONE PROPIONATE\SALMETEROL XINAFOATE
     Indication: PRODUCT USED FOR UNKNOWN INDICATION
     Dosage: 1 DF, BID (IN THE MORNING AND IN THE EVENING)
  10. SALBUMOL [Suspect]
     Active Substance: ALBUTEROL SULFATE
     Dosage: UNK, Z
     Route: 042
     Dates: start: 20160304
  11. SALBUMOL [Suspect]
     Active Substance: ALBUTEROL SULFATE
     Dosage: UNK UNK, Z (1 MG PER HOUR, THEN DECREASED AT 0.8 MG PER HOUR)
     Route: 042
     Dates: start: 20160307, end: 20160308
  12. XOLAIR [Concomitant]
     Active Substance: OMALIZUMAB
     Indication: PRODUCT USED FOR UNKNOWN INDICATION
     Dosage: UNK
     Dates: start: 20160226
  13. SALBUMOL [Suspect]
     Active Substance: ALBUTEROL SULFATE
     Dosage: UNK UNK, Z (0.5 MG PER HOUR)
     Route: 042
     Dates: start: 20160310
  14. MAGNESIUM SULFATE. [Concomitant]
     Active Substance: MAGNESIUM SULFATE
     Indication: PRODUCT USED FOR UNKNOWN INDICATION
     Dosage: UNK
     Dates: start: 20160302
  15. PARACETAMOL [Concomitant]
     Active Substance: ACETAMINOPHEN
     Indication: PAIN
     Dosage: UNK UNK, PRN
  16. SOLUPRED [Concomitant]
     Active Substance: PREDNISOLONE
     Indication: PRODUCT USED FOR UNKNOWN INDICATION
     Dosage: UNK
     Dates: start: 20160226
  17. AUGMENTIN [Concomitant]
     Active Substance: AMOXICILLIN\CLAVULANATE POTASSIUM
     Indication: PRODUCT USED FOR UNKNOWN INDICATION
     Dosage: UNK
     Dates: start: 20160226
  18. AMBROXOL [Concomitant]
     Active Substance: AMBROXOL
     Indication: PRODUCT USED FOR UNKNOWN INDICATION
     Dosage: UNK
     Dates: start: 20160226

REACTIONS (2)
  - Myocardial infarction [Recovered/Resolved with Sequelae]
  - Drug administered at inappropriate site [Unknown]

NARRATIVE: CASE EVENT DATE: 20160314
